FAERS Safety Report 4975049-0 (Version None)
Quarter: 2006Q2

REPORT INFORMATION
  Report Type: 
  Country: None (occurrence: None)
  Receive Date: 20060411
  Receipt Date: 20060327
  Transmission Date: 20061013
  Serious: Yes (Death, Hospitalization)
  Sender: FDA-Public Use
  Company Number: 2006-00176

PATIENT
  Age: 49 Year
  Sex: Male

DRUGS (9)
  1. VELCADE [Suspect]
     Indication: MULTIPLE MYELOMA
     Dosage: 1.30 MG/KG, INTRAVENOUS
     Route: 042
     Dates: start: 20060112, end: 20060117
  2. MIST (MORPHINE SULFATE) [Concomitant]
  3. ASPIRIN [Concomitant]
  4. GLUCOSAMINE [Concomitant]
  5. ATENOLOL [Concomitant]
  6. DICLOFENAC SODIUM [Concomitant]
  7. GABAPENTIN [Concomitant]
  8. PANTOPRAZOLE [Concomitant]
  9. MOVICOL (SODIUM BICARBONATE, SODIUM CHLORIDE, MACROGOL, POTASSIUM CHLO [Concomitant]

REACTIONS (4)
  - GENERAL PHYSICAL HEALTH DETERIORATION [None]
  - LOSS OF CONSCIOUSNESS [None]
  - RENAL FAILURE ACUTE [None]
  - SUDDEN DEATH [None]
